FAERS Safety Report 7935001-X (Version None)
Quarter: 2011Q4

REPORT INFORMATION
  Report Type: 
  Country: None (occurrence: None)
  Receive Date: 20111122
  Receipt Date: 20111115
  Transmission Date: 20120403
  Serious: Yes (Hospitalization, Other)
  Sender: FDA-Public Use
  Company Number: US-PURDUE-USA-2011-0068822

PATIENT
  Sex: Female

DRUGS (5)
  1. CELEBREX [Concomitant]
     Indication: PRODUCT USED FOR UNKNOWN INDICATION
  2. OXYCONTIN [Suspect]
     Indication: PAIN
     Dosage: 20 MG, TID
  3. OXYCONTIN [Suspect]
     Dosage: 20 MG, BID
  4. TYLENOL (CAPLET) [Concomitant]
     Indication: PRODUCT USED FOR UNKNOWN INDICATION
  5. BONIVA [Concomitant]
     Indication: PRODUCT USED FOR UNKNOWN INDICATION

REACTIONS (10)
  - ALANINE AMINOTRANSFERASE INCREASED [None]
  - GASTRITIS [None]
  - GASTROENTERITIS [None]
  - OESOPHAGITIS [None]
  - BILIARY TRACT DISORDER [None]
  - ASPARTATE AMINOTRANSFERASE INCREASED [None]
  - CHOLECYSTECTOMY [None]
  - BLOOD ALKALINE PHOSPHATASE INCREASED [None]
  - PANCREATOBILIARY SPHINCTEROTOMY [None]
  - ABDOMINAL PAIN UPPER [None]
